FAERS Safety Report 21821601 (Version 2)
Quarter: 2023Q1

REPORT INFORMATION
  Report Type: Report from Study
  Country: US (occurrence: US)
  Receive Date: 20230105
  Receipt Date: 20230124
  Transmission Date: 20230417
  Serious: Yes (Other)
  Sender: FDA-Public Use
  Company Number: US-ABBVIE-4258043

PATIENT
  Sex: Female

DRUGS (2)
  1. HUMIRA [Suspect]
     Active Substance: ADALIMUMAB
     Indication: Hidradenitis
     Route: 058
     Dates: start: 20140716
  2. HUMIRA [Suspect]
     Active Substance: ADALIMUMAB
     Indication: Psoriasis

REACTIONS (8)
  - Breast cancer [Unknown]
  - Breast calcifications [Unknown]
  - Chronic cutaneous lupus erythematosus [Unknown]
  - Illness [Unknown]
  - Photophobia [Unknown]
  - Hyperacusis [Unknown]
  - Pain [Unknown]
  - Furuncle [Unknown]
